FAERS Safety Report 9368939 (Version 1)
Quarter: 2013Q2

REPORT INFORMATION
  Report Type: Spontaneous
  Country: US (occurrence: None)
  Receive Date: 20130610
  Receipt Date: 20130610
  Transmission Date: 20140414
  Serious: Yes (Death)
  Sender: FDA-Public Use
  Company Number: 2013036348

PATIENT
  Age: 35 Year
  Sex: Male

DRUGS (1)
  1. ALBURX [Suspect]
     Indication: MYASTHENIA GRAVIS
     Dosage: EXPIRY
     Route: 042
     Dates: end: 201412

REACTIONS (1)
  - Off label use [None]
